FAERS Safety Report 24369032 (Version 2)
Quarter: 2025Q1

REPORT INFORMATION
  Report Type: Spontaneous
  Country: CO (occurrence: CO)
  Receive Date: 20240927
  Receipt Date: 20250226
  Transmission Date: 20250408
  Serious: Yes (Life-Threatening, Disabling, Other)
  Sender: SANDOZ
  Company Number: CO-002147023-NVSC2020CO343761

PATIENT
  Age: 50 Year
  Sex: Female
  Weight: 53 kg

DRUGS (26)
  1. FEMARA [Suspect]
     Active Substance: LETROZOLE
     Indication: Breast cancer
     Dosage: 2.5 MG, QD
     Route: 048
     Dates: start: 202007
  2. FEMARA [Suspect]
     Active Substance: LETROZOLE
     Dosage: UNK (THE TREATMENT AFTER BREAKFAST)
     Route: 048
  3. FEMARA [Suspect]
     Active Substance: LETROZOLE
     Dosage: UNK, QD
     Route: 048
  4. FEMARA [Suspect]
     Active Substance: LETROZOLE
     Route: 048
     Dates: start: 20210921
  5. KISQALI [Suspect]
     Active Substance: RIBOCICLIB
     Dosage: 400 MG, QD
     Route: 048
  6. KISQALI [Suspect]
     Active Substance: RIBOCICLIB
     Dosage: 400 MG, QD
     Route: 048
  7. KISQALI [Suspect]
     Active Substance: RIBOCICLIB
     Indication: Hormone receptor positive HER2 negative breast cancer
     Dosage: 600 MG, QD
     Route: 048
     Dates: start: 202012
  8. KISQALI [Suspect]
     Active Substance: RIBOCICLIB
     Dosage: 600 MG, QD
     Route: 048
     Dates: start: 20201109
  9. KISQALI [Suspect]
     Active Substance: RIBOCICLIB
     Dosage: 600 MG, QD
     Route: 048
     Dates: start: 202206
  10. KISQALI [Suspect]
     Active Substance: RIBOCICLIB
     Dosage: 600 MG, QD
     Route: 048
  11. KISQALI [Suspect]
     Active Substance: RIBOCICLIB
     Dosage: UNK, QD
     Route: 048
  12. KISQALI [Suspect]
     Active Substance: RIBOCICLIB
     Route: 048
     Dates: start: 20210920
  13. KISQALI [Suspect]
     Active Substance: RIBOCICLIB
     Route: 048
  14. ZOLEDRONIC ACID [Suspect]
     Active Substance: ZOLEDRONIC ACID
     Dosage: 4 MG, QMO
     Route: 042
  15. ZOLEDRONIC ACID [Suspect]
     Active Substance: ZOLEDRONIC ACID
     Indication: Product used for unknown indication
     Dosage: UNK, QMO
     Route: 042
     Dates: start: 202009
  16. CALCIUM [Concomitant]
     Active Substance: CALCIUM
     Indication: Product used for unknown indication
     Route: 065
  17. CALCIUM CARBONATE [Concomitant]
     Active Substance: CALCIUM CARBONATE
     Indication: Supplementation therapy
     Dosage: UNK, Q48H
     Route: 048
  18. FOLIC ACID [Concomitant]
     Active Substance: FOLIC ACID
     Indication: Product used for unknown indication
     Dosage: UNK, QD
     Route: 048
     Dates: start: 2020
  19. HYDROCODONE [Concomitant]
     Active Substance: HYDROCODONE
     Indication: Product used for unknown indication
     Route: 065
  20. UNSPECIFIED INGREDIENT [Concomitant]
     Active Substance: UNSPECIFIED INGREDIENT
     Indication: Product used for unknown indication
     Route: 065
  21. LETROZOLE [Concomitant]
     Active Substance: LETROZOLE
     Indication: Breast cancer
     Route: 065
  22. OMEPRAZOLE [Concomitant]
     Active Substance: OMEPRAZOLE
     Indication: Gastritis
     Dosage: UNK, QD
     Route: 048
     Dates: start: 2020
  23. OMEPRAZOLE [Concomitant]
     Active Substance: OMEPRAZOLE
     Route: 065
  24. THIAMINE [Concomitant]
     Active Substance: THIAMINE
     Indication: Product used for unknown indication
     Dosage: 300 MG, QD (SINCE TWO MONTHS AGO)
     Route: 048
  25. THIAMINE [Concomitant]
     Active Substance: THIAMINE
     Route: 065
  26. VITAMIN D3 [Concomitant]
     Active Substance: CHOLECALCIFEROL
     Indication: Product used for unknown indication
     Route: 065

REACTIONS (112)
  - Dysstasia [Unknown]
  - Glaucoma [Unknown]
  - Arthropathy [Unknown]
  - Breast mass [Unknown]
  - Sjogren^s syndrome [Unknown]
  - Breast cancer recurrent [Unknown]
  - Exophthalmos [Unknown]
  - Rheumatic disorder [Unknown]
  - Brain injury [Unknown]
  - Cellulitis [Unknown]
  - Neoplasm malignant [Unknown]
  - Neutropenia [Unknown]
  - White blood cell count decreased [Unknown]
  - Choking [Unknown]
  - Metastases to spine [Unknown]
  - Metastases to bone [Unknown]
  - Hypersensitivity [Unknown]
  - Weight increased [Unknown]
  - Haemorrhoids [Unknown]
  - Loss of visual contrast sensitivity [Unknown]
  - Haemoglobin decreased [Unknown]
  - Anaemia [Unknown]
  - Dry mouth [Unknown]
  - Pruritus [Unknown]
  - Decreased immune responsiveness [Unknown]
  - Post procedural complication [Unknown]
  - Tremor [Unknown]
  - Pharyngitis [Unknown]
  - Oropharyngeal discomfort [Unknown]
  - Rhinorrhoea [Unknown]
  - Lipoma [Unknown]
  - Confusional state [Unknown]
  - Spinal disorder [Unknown]
  - Sensitisation [Unknown]
  - Throat irritation [Unknown]
  - Frustration tolerance decreased [Unknown]
  - Burning sensation [Unknown]
  - Skin exfoliation [Unknown]
  - Eczema [Unknown]
  - Dermatitis acneiform [Unknown]
  - Nipple disorder [Unknown]
  - Chondropathy [Unknown]
  - Synovial cyst [Unknown]
  - Limb discomfort [Unknown]
  - Acarodermatitis [Unknown]
  - Elbow deformity [Unknown]
  - Eye disorder [Unknown]
  - Eye swelling [Unknown]
  - Haematoma [Unknown]
  - Inflammation [Unknown]
  - Acne [Unknown]
  - Eyelash changes [Unknown]
  - Madarosis [Unknown]
  - Mutism [Unknown]
  - Unevaluable event [Unknown]
  - Rib deformity [Unknown]
  - Illness [Unknown]
  - General physical health deterioration [Unknown]
  - Tinnitus [Unknown]
  - Ulcer [Unknown]
  - Spinal pain [Unknown]
  - Cerebral disorder [Unknown]
  - Blood cholesterol abnormal [Unknown]
  - Blood triglycerides abnormal [Unknown]
  - Immune system disorder [Unknown]
  - Pain [Unknown]
  - Influenza [Unknown]
  - Visual impairment [Unknown]
  - Laryngitis [Unknown]
  - Discouragement [Unknown]
  - Dermatitis [Unknown]
  - Sensitive skin [Unknown]
  - Sensory disturbance [Unknown]
  - Somnolence [Unknown]
  - Hypertension [Recovered/Resolved]
  - Tension [Recovered/Resolved]
  - Urticaria [Recovering/Resolving]
  - Fracture [Unknown]
  - Malaise [Unknown]
  - Vomiting [Unknown]
  - Migraine [Recovering/Resolving]
  - Back pain [Unknown]
  - Lymphocyte count decreased [Unknown]
  - Decreased appetite [Unknown]
  - Headache [Unknown]
  - Pyrexia [Unknown]
  - Cough [Unknown]
  - Skin irritation [Unknown]
  - Rash [Unknown]
  - Chills [Unknown]
  - Dry skin [Unknown]
  - Fatigue [Unknown]
  - Dizziness [Unknown]
  - Nausea [Recovering/Resolving]
  - Neck pain [Unknown]
  - Nausea [Unknown]
  - Bone lesion [Unknown]
  - Arthralgia [Unknown]
  - Apathy [Unknown]
  - Ill-defined disorder [Unknown]
  - Product availability issue [Unknown]
  - Pain in extremity [Not Recovered/Not Resolved]
  - Hyperhidrosis [Unknown]
  - Palpitations [Unknown]
  - Constipation [Unknown]
  - Weight decreased [Unknown]
  - Drug ineffective [Unknown]
  - Pain in extremity [Not Recovered/Not Resolved]
  - Incorrect dose administered [Unknown]
  - Head discomfort [Unknown]
  - Feeling abnormal [Unknown]
  - Synovial cyst [Unknown]

NARRATIVE: CASE EVENT DATE: 20220120
